FAERS Safety Report 6414935-1 (Version None)
Quarter: 2009Q4

REPORT INFORMATION
  Report Type: 
  Country: None (occurrence: None)
  Receive Date: 20091026
  Receipt Date: 20090317
  Transmission Date: 20100525
  Serious: No
  Sender: FDA-Public Use
  Company Number: US-ABBOTT-09P-163-0563374-00

PATIENT
  Age: 25 Year
  Sex: Female

DRUGS (1)
  1. LUPRON DEPOT [Suspect]
     Indication: ENDOMETRIOSIS
     Dates: start: 20081001

REACTIONS (5)
  - DRUG INEFFECTIVE [None]
  - HAEMORRHAGE [None]
  - OVARIAN CYST [None]
  - PELVIC PAIN [None]
  - UNEVALUABLE EVENT [None]
